FAERS Safety Report 10080588 (Version 2)
Quarter: 2015Q2

REPORT INFORMATION
  Report Type: Spontaneous
  Country: US (occurrence: US)
  Receive Date: 20140416
  Receipt Date: 20150430
  Transmission Date: 20150821
  Serious: Yes (Other)
  Sender: FDA-Public Use
  Company Number: US-AMGEN INC.-USASP2014026863

PATIENT
  Age: 56 Year
  Sex: Female

DRUGS (1)
  1. ENBREL [Suspect]
     Active Substance: ETANERCEPT
     Indication: RHEUMATOID ARTHRITIS
     Dosage: 50 MG, QWK
     Route: 065
     Dates: start: 20080730

REACTIONS (17)
  - Lymphoma [Not Recovered/Not Resolved]
  - Pruritus [Not Recovered/Not Resolved]
  - Sinusitis [Unknown]
  - Lymphocytic leukaemia [Unknown]
  - Headache [Recovered/Resolved]
  - White blood cell count abnormal [Unknown]
  - Injection site reaction [Not Recovered/Not Resolved]
  - Felty^s syndrome [Unknown]
  - Neoplasm malignant [Not Recovered/Not Resolved]
  - Atypical pneumonia [Recovered/Resolved]
  - Vomiting [Recovered/Resolved]
  - Autoimmune disorder [Unknown]
  - Local swelling [Not Recovered/Not Resolved]
  - Rash papular [Not Recovered/Not Resolved]
  - Nasopharyngitis [Unknown]
  - Urinary tract infection [Unknown]
  - Rheumatoid arthritis [Recovered/Resolved]

NARRATIVE: CASE EVENT DATE: 2012
